FAERS Safety Report 7085320-7 (Version None)
Quarter: 2010Q4

REPORT INFORMATION
  Report Type: 
  Country: None (occurrence: None)
  Receive Date: 20101105
  Receipt Date: 20101026
  Transmission Date: 20110411
  Serious: Yes (Other)
  Sender: FDA-Public Use
  Company Number: FI-PFIZER INC-2010135741

PATIENT
  Age: 47 Year
  Sex: Male

DRUGS (2)
  1. LYRICA [Suspect]
     Indication: SCIATICA
     Dosage: 25 MG
     Route: 048
     Dates: start: 20101004, end: 20101018
  2. LYRICA [Suspect]
     Dosage: 75 MG
     Route: 048
     Dates: start: 20101001, end: 20101018

REACTIONS (4)
  - DEREALISATION [None]
  - DIZZINESS [None]
  - RADIAL NERVE PALSY [None]
  - SOMNOLENCE [None]
